FAERS Safety Report 14084610 (Version 1)
Quarter: 2017Q4

REPORT INFORMATION
  Report Type: Report from Study
  Country: US (occurrence: US)
  Receive Date: 20171013
  Receipt Date: 20171013
  Transmission Date: 20180321
  Serious: Yes (Death, Other)
  Sender: FDA-Public Use
  Company Number: US-BRISTOL-MYERS SQUIBB COMPANY-BMS-2017-058060

PATIENT
  Sex: Male

DRUGS (1)
  1. NIVOLUMAB [Suspect]
     Active Substance: NIVOLUMAB
     Indication: MALIGNANT MELANOMA
     Dosage: 240 MG, Q2WK
     Route: 042
     Dates: start: 20170623

REACTIONS (16)
  - Decreased appetite [Unknown]
  - Chest pain [Unknown]
  - Memory impairment [Unknown]
  - Irritability [Unknown]
  - Death [Fatal]
  - Dyspnoea [Unknown]
  - Weight increased [Unknown]
  - Muscular weakness [Unknown]
  - Hallucination [Unknown]
  - Fall [Unknown]
  - Thirst [Unknown]
  - Dysstasia [Unknown]
  - Headache [Unknown]
  - Joint swelling [Unknown]
  - Fatigue [Unknown]
  - Malignant neoplasm progression [Unknown]
